FAERS Safety Report 8990090 (Version 1)
Quarter: 2012Q4

REPORT INFORMATION
  Report Type: 
  Country: IT (occurrence: IT)
  Receive Date: 20121228
  Receipt Date: 20121228
  Transmission Date: 20130627
  Serious: Yes (Other)
  Sender: FDA-Public Use
  Company Number: PHHY2012IT120531

PATIENT
  Sex: Female

DRUGS (1)
  1. LOSARTAN SANDOZ [Suspect]
     Indication: HYPERTENSION
     Dosage: 50 mg, UNK
     Route: 048
     Dates: start: 20121106, end: 20121115

REACTIONS (2)
  - Eyelid oedema [Recovered/Resolved]
  - Dysphonia [Recovered/Resolved]
